FAERS Safety Report 20800013 (Version 3)
Quarter: 2024Q2

REPORT INFORMATION
  Report Type: Spontaneous
  Country: US (occurrence: US)
  Receive Date: 20220509
  Receipt Date: 20240510
  Transmission Date: 20240716
  Serious: No
  Sender: FDA-Public Use
  Company Number: US-UCBSA-2021053815

PATIENT
  Age: 55 Year
  Sex: Male

DRUGS (1)
  1. CIMZIA [Suspect]
     Active Substance: CERTOLIZUMAB PEGOL
     Indication: Psoriasis
     Dosage: 400 MILLIGRAM, EV 2 WEEKS(QOW)
     Route: 058
     Dates: start: 202011

REACTIONS (6)
  - Feeling abnormal [Unknown]
  - Therapy interrupted [Unknown]
  - Product availability issue [Unknown]
  - Insurance issue [Unknown]
  - Product dose omission issue [Unknown]
  - Drug resistance [Unknown]

NARRATIVE: CASE EVENT DATE: 20211029
